FAERS Safety Report 18263721 (Version 2)
Quarter: 2021Q1

REPORT INFORMATION
  Report Type: Spontaneous
  Country: US (occurrence: US)
  Receive Date: 20200914
  Receipt Date: 20210127
  Transmission Date: 20210419
  Serious: Yes (Other)
  Sender: FDA-Public Use
  Company Number: US-PURDUE-USA-2020-0165865

PATIENT
  Sex: Female

DRUGS (4)
  1. OXYCODONE HCL CR TABLETS (SIMILAR TO NDA 22?272) [Suspect]
     Active Substance: OXYCODONE HYDROCHLORIDE
     Indication: PRODUCT USED FOR UNKNOWN INDICATION
     Dosage: UNKNOWN
     Route: 048
  2. OXYCODONE HYDROCHLORIDE (SIMILAR TO NDA 22?272) [Suspect]
     Active Substance: OXYCODONE HYDROCHLORIDE
     Indication: PRODUCT USED FOR UNKNOWN INDICATION
     Dosage: UNK
     Route: 065
  3. HYDROCODONE BITARTRATE AND ACETAMINOPHEN [Suspect]
     Active Substance: ACETAMINOPHEN\HYDROCODONE BITARTRATE
     Indication: PRODUCT USED FOR UNKNOWN INDICATION
     Dosage: UNKNOWN
     Route: 048
  4. OXYCONTIN [Suspect]
     Active Substance: OXYCODONE HYDROCHLORIDE
     Indication: PAIN IN EXTREMITY
     Dosage: UNK
     Route: 048
     Dates: start: 2008

REACTIONS (18)
  - Arthralgia [Unknown]
  - Tooth fracture [Unknown]
  - Drug detoxification [Unknown]
  - Overdose [Unknown]
  - Laparoscopy [Unknown]
  - Nerve injury [Unknown]
  - Drug dependence [Unknown]
  - Abdominal pain [Unknown]
  - Hypoaesthesia [Unknown]
  - Arthroscopy [Unknown]
  - Cerebrovascular accident [Unknown]
  - Bruxism [Unknown]
  - Thinking abnormal [Unknown]
  - Disturbance in attention [Unknown]
  - Knee arthroplasty [Unknown]
  - Sensory loss [Unknown]
  - Neuropathy peripheral [Unknown]
  - Gait disturbance [Unknown]
